FAERS Safety Report 21756440 (Version 1)
Quarter: 2022Q4

REPORT INFORMATION
  Report Type: Spontaneous
  Country: DE (occurrence: None)
  Receive Date: 20221220
  Receipt Date: 20221220
  Transmission Date: 20230112
  Serious: Yes (Other)
  Sender: FDA-Public Use
  Company Number: 2022A399574

PATIENT
  Age: 52 Year
  Sex: Female
  Weight: 56 kg

DRUGS (1)
  1. EVUSHELD [Suspect]
     Active Substance: CILGAVIMAB\TIXAGEVIMAB
     Indication: Product used for unknown indication
     Dosage: DOSE AND FREQUENCY UNKNOWN (TIXAGEVIMAB/CILGAVIMAB) UNKNOWN
     Route: 030
     Dates: start: 20221106, end: 20221106

REACTIONS (2)
  - Hypertensive crisis [Not Recovered/Not Resolved]
  - Palpitations [Not Recovered/Not Resolved]
